FAERS Safety Report 4991067-0 (Version None)
Quarter: 2006Q2

REPORT INFORMATION
  Report Type: 
  Country: None (occurrence: None)
  Receive Date: 20060428
  Receipt Date: 20060417
  Transmission Date: 20061013
  Serious: Yes (Hospitalization, Other)
  Sender: FDA-Public Use
  Company Number: 2006033032

PATIENT
  Sex: Female
  Weight: 57.1532 kg

DRUGS (3)
  1. ROGAINE [Suspect]
     Indication: HYPOTRICHOSIS
     Dosage: TOPICAL
     Route: 061
     Dates: start: 19990101
  2. MINOCYCLINE HCL [Concomitant]
  3. LEVOTHYROXINE SODIUM [Concomitant]

REACTIONS (1)
  - PERICARDITIS [None]
